FAERS Safety Report 5048705-6 (Version None)
Quarter: 2006Q3

REPORT INFORMATION
  Report Type: 
  Country: None (occurrence: None)
  Receive Date: 20060712
  Receipt Date: 20060704
  Transmission Date: 20061208
  Serious: Yes (Hospitalization)
  Sender: FDA-Public Use
  Company Number: DE-JNJFOC-20060700578

PATIENT
  Age: 70 Year
  Sex: Female
  Weight: 68 kg

DRUGS (6)
  1. REMICADE [Suspect]
     Indication: COLITIS ULCERATIVE
     Route: 042
  2. REMICADE [Suspect]
     Indication: POLYARTHRITIS
     Route: 042
  3. PREDNISOLONE [Concomitant]
     Indication: RHEUMATOID ARTHRITIS
  4. ATACAND [Concomitant]
  5. VERAPAMIL [Concomitant]
     Indication: HYPERTENSION
  6. SORTIS [Concomitant]
     Indication: HYPERCHOLESTEROLAEMIA

REACTIONS (2)
  - HEPATITIS [None]
  - LUPUS-LIKE SYNDROME [None]
